FAERS Safety Report 16877731 (Version 1)
Quarter: 2019Q4

REPORT INFORMATION
  Report Type: Spontaneous
  Country: CA (occurrence: CA)
  Receive Date: 20191002
  Receipt Date: 20191002
  Transmission Date: 20200122
  Serious: Yes (Other)
  Sender: FDA-Public Use
  Company Number: PHHY2019CA226708

PATIENT
  Sex: Male

DRUGS (2)
  1. HYDROXYZINE HYDROCHLORIDE. [Suspect]
     Active Substance: HYDROXYZINE HYDROCHLORIDE
     Indication: GRAFT VERSUS HOST DISEASE
     Dosage: UNK
     Route: 065
  2. PREDNISONE. [Suspect]
     Active Substance: PREDNISONE
     Indication: GRAFT VERSUS HOST DISEASE
     Dosage: 75 MG, QD (1MG/KG/DAY)
     Route: 065
     Dates: start: 20190813

REACTIONS (3)
  - Rash maculo-papular [Unknown]
  - Condition aggravated [Unknown]
  - Graft versus host disease [Unknown]
